FAERS Safety Report 7683550-4 (Version None)
Quarter: 2011Q3

REPORT INFORMATION
  Report Type: 
  Country: None (occurrence: None)
  Receive Date: 20110815
  Receipt Date: 20110808
  Transmission Date: 20111222
  Serious: Yes (Other)
  Sender: FDA-Public Use
  Company Number: US-CEPHALON-US023557

PATIENT
  Age: 39 Year
  Sex: Female

DRUGS (3)
  1. VICODIN [Suspect]
     Route: 065
  2. HYDROCODONE [Suspect]
     Route: 065
  3. PROVIGIL [Suspect]
     Route: 048

REACTIONS (2)
  - DRUG DIVERSION [None]
  - DRUG DEPENDENCE [None]
